FAERS Safety Report 9796886 (Version 3)
Quarter: 2014Q3

REPORT INFORMATION
  Report Type: Spontaneous
  Country: US (occurrence: US)
  Receive Date: 20140104
  Receipt Date: 20140723
  Transmission Date: 20150326
  Serious: Yes (Hospitalization, Other)
  Sender: FDA-Public Use
  Company Number: US-009507513-1401USA000858

PATIENT
  Sex: Female

DRUGS (2)
  1. NUVARING [Suspect]
     Active Substance: ETHINYL ESTRADIOL\ETONOGESTREL
     Indication: MENORRHAGIA
     Dosage: UNK
     Route: 067
     Dates: start: 20100111, end: 201101
  2. NUVARING [Suspect]
     Active Substance: ETHINYL ESTRADIOL\ETONOGESTREL
     Indication: CONTRACEPTION

REACTIONS (17)
  - Deep vein thrombosis [Unknown]
  - Microcytic anaemia [Unknown]
  - Mechanical ventilation [Unknown]
  - Pneumonia necrotising [Unknown]
  - Thoracic operation [Unknown]
  - Aspiration pleural cavity [Unknown]
  - Urticaria [Unknown]
  - Sepsis [Unknown]
  - Embolism venous [Unknown]
  - Mobility decreased [Unknown]
  - Rash generalised [Unknown]
  - Pleural effusion [Unknown]
  - Pulmonary embolism [Unknown]
  - Acute respiratory failure [Unknown]
  - Endotracheal intubation [Unknown]
  - Drug hypersensitivity [Unknown]
  - Pulmonary infarction [Unknown]

NARRATIVE: CASE EVENT DATE: 20110103
